FAERS Safety Report 5807435-0 (Version None)
Quarter: 2008Q3

REPORT INFORMATION
  Report Type: 
  Country: None (occurrence: None)
  Receive Date: 20080711
  Receipt Date: 20080703
  Transmission Date: 20090109
  Serious: Yes (Hospitalization)
  Sender: FDA-Public Use
  Company Number: US-MERCK-0802USA05625

PATIENT
  Age: 67 Year
  Sex: Female
  Weight: 67 kg

DRUGS (9)
  1. JANUVIA [Suspect]
     Indication: DIABETES MELLITUS
     Route: 048
     Dates: start: 20080203, end: 20080216
  2. MAXZIDE [Concomitant]
     Route: 048
     Dates: start: 20061211
  3. GLIPIZIDE [Concomitant]
     Route: 048
     Dates: start: 20061127
  4. LOTRIMIN [Concomitant]
     Route: 061
     Dates: start: 20060517
  5. LEVSIN [Concomitant]
     Route: 048
     Dates: start: 20070220
  6. CLONIDINE [Concomitant]
     Route: 048
     Dates: start: 20070605
  7. LIPITOR [Concomitant]
     Route: 048
     Dates: start: 20071115
  8. LOTENSIN [Concomitant]
     Route: 065
     Dates: start: 20061121
  9. CYANOCOBALAMIN [Concomitant]
     Route: 048

REACTIONS (3)
  - OROPHARYNGEAL PAIN [None]
  - TOXIC EPIDERMAL NECROLYSIS [None]
  - TYPE 2 DIABETES MELLITUS [None]
